FAERS Safety Report 4821496-7 (Version None)
Quarter: 2005Q4

REPORT INFORMATION
  Report Type: 
  Country: None (occurrence: None)
  Receive Date: 20051107
  Receipt Date: 20031030
  Transmission Date: 20060501
  Serious: Yes (Life-Threatening, Hospitalization, Disabling)
  Sender: FDA-Public Use
  Company Number: GR-GLAXOSMITHKLINE-B0313743A

PATIENT
  Age: 53 Year
  Sex: Male

DRUGS (1)
  1. AUGMENTIN '125' [Suspect]
     Dosage: 625MG VARIABLE DOSE
     Route: 048
     Dates: start: 20031009, end: 20031024

REACTIONS (4)
  - APLASTIC ANAEMIA [None]
  - ARRHYTHMIA [None]
  - DIABETES MELLITUS [None]
  - FOLLICULITIS [None]
